FAERS Safety Report 7113423-7 (Version None)
Quarter: 2010Q4

REPORT INFORMATION
  Report Type: 
  Country: None (occurrence: None)
  Receive Date: 20101119
  Receipt Date: 20101011
  Transmission Date: 20110411
  Serious: No
  Sender: FDA-Public Use
  Company Number: A0885898A

PATIENT
  Sex: Female

DRUGS (1)
  1. ARZERRA [Suspect]
     Dosage: 300MG PER DAY
     Route: 042
     Dates: start: 20091201

REACTIONS (3)
  - INFUSION RELATED REACTION [None]
  - PRURITUS [None]
  - THROAT IRRITATION [None]
